FAERS Safety Report 5829899-9 (Version None)
Quarter: 2008Q3

REPORT INFORMATION
  Report Type: 
  Country: None (occurrence: None)
  Receive Date: 20080801
  Receipt Date: 20080725
  Transmission Date: 20090109
  Serious: Yes (Other)
  Sender: FDA-Public Use
  Company Number: FR-AVENTIS-200812829FR

PATIENT
  Age: 93 Year
  Sex: Female
  Weight: 81 kg

DRUGS (13)
  1. LASILIX FAIBLE [Suspect]
     Indication: CARDIAC FAILURE
     Route: 048
     Dates: end: 20071029
  2. LASILIX FAIBLE [Suspect]
     Route: 048
     Dates: start: 20071029
  3. MINIRIN [Suspect]
     Route: 045
     Dates: start: 20071020, end: 20071110
  4. COVERSYL                           /00790701/ [Suspect]
     Route: 048
  5. MOPRAL [Suspect]
     Indication: DRUG USE FOR UNKNOWN INDICATION
     Route: 048
  6. KARDEGIC                           /00002703/ [Concomitant]
     Indication: DRUG USE FOR UNKNOWN INDICATION
     Route: 048
  7. VASTAREL [Concomitant]
     Indication: DRUG USE FOR UNKNOWN INDICATION
     Route: 048
  8. OROCAL D3 [Concomitant]
     Indication: DRUG USE FOR UNKNOWN INDICATION
     Route: 048
  9. TEMESTA                            /00273201/ [Concomitant]
     Indication: DRUG USE FOR UNKNOWN INDICATION
     Route: 048
  10. DI-ANTALVIC                        /00220901/ [Concomitant]
     Indication: DRUG USE FOR UNKNOWN INDICATION
     Route: 048
  11. CERIS [Concomitant]
     Indication: MICTURITION URGENCY
     Route: 048
     Dates: start: 20070710, end: 20071020
  12. TIAPRIDAL                          /00435701/ [Concomitant]
     Indication: DRUG USE FOR UNKNOWN INDICATION
  13. IXPRIM [Concomitant]
     Indication: DRUG USE FOR UNKNOWN INDICATION
     Route: 048
     Dates: start: 20071020

REACTIONS (4)
  - DRUG INEFFECTIVE [None]
  - FALL [None]
  - HYPONATRAEMIA [None]
  - OEDEMA PERIPHERAL [None]
